FAERS Safety Report 5851866-X (Version None)
Quarter: 2008Q3

REPORT INFORMATION
  Report Type: 
  Country: None (occurrence: None)
  Receive Date: 20080819
  Receipt Date: 20080806
  Transmission Date: 20090109
  Serious: Yes (Other)
  Sender: FDA-Public Use
  Company Number: 2008-02283

PATIENT
  Sex: Female

DRUGS (27)
  1. VELCADE [Suspect]
     Indication: MULTIPLE MYELOMA
     Dosage: 1.3 MG,   INTRAVENOUS;1.4 MG, INTRAVENOUS; 1.8MG, INTRAVENOUS; 1.7 MG, INTRAVENOUS
     Route: 042
     Dates: start: 20071201, end: 20080201
  2. VELCADE [Suspect]
     Indication: MULTIPLE MYELOMA
     Dosage: 1.3 MG,   INTRAVENOUS;1.4 MG, INTRAVENOUS; 1.8MG, INTRAVENOUS; 1.7 MG, INTRAVENOUS
     Route: 042
     Dates: start: 20071214, end: 20080213
  3. VELCADE [Suspect]
     Indication: MULTIPLE MYELOMA
     Dosage: 1.3 MG,   INTRAVENOUS;1.4 MG, INTRAVENOUS; 1.8MG, INTRAVENOUS; 1.7 MG, INTRAVENOUS
     Route: 042
     Dates: start: 20080222, end: 20080227
  4. VELCADE [Suspect]
     Indication: MULTIPLE MYELOMA
     Dosage: 1.3 MG,   INTRAVENOUS;1.4 MG, INTRAVENOUS; 1.8MG, INTRAVENOUS; 1.7 MG, INTRAVENOUS
     Route: 042
     Dates: start: 20080616, end: 20080627
  5. VELCADE [Suspect]
     Indication: MULTIPLE MYELOMA
     Dosage: 1.3 MG,   INTRAVENOUS;1.4 MG, INTRAVENOUS; 1.8MG, INTRAVENOUS; 1.7 MG, INTRAVENOUS
     Route: 042
     Dates: start: 20080616
  6. DEXAMETHASONE TAB [Suspect]
     Indication: MULTIPLE MYELOMA
     Dosage: 20 MG
     Dates: start: 20080616
  7. NIZATIDINE [Concomitant]
  8. BACTRIM [Concomitant]
  9. ACIROVEC (ACICLOVIR) [Concomitant]
  10. METHYCOBAL (MECOBALAMIN) [Concomitant]
  11. MARZULENE S (LEVOGLUTAMIDE, SODIUM GUALENATE) [Concomitant]
  12. ATP (ADENOSINE TRIPHOSPHATE, DISODIUM SALT) [Concomitant]
  13. HUMULIN R [Concomitant]
  14. KYTRIL [Concomitant]
  15. DEXAMETHASONE SODIUM PHOSPHATE [Concomitant]
  16. BONALON [Concomitant]
  17. ITRACONAZOLE [Concomitant]
  18. ZOLPIDEM TARTRATE [Concomitant]
  19. SP (DEQUALINIUM CHLORIDE) [Concomitant]
  20. CALCIUM L-ASPARTATE [Concomitant]
  21. CALCICOL (CALCIUM GLUCONATE) [Concomitant]
  22. NIPOLAZIN (MEQUITAZINE) [Concomitant]
  23. MAGNESIUM OXIDE (MAGNESIUM OXIDE) [Concomitant]
  24. SENNOSIDE [Concomitant]
  25. LOPERAMIDE HCL [Concomitant]
  26. HYOSCINE HBR HYT [Concomitant]
  27. PLATELETS [Concomitant]

REACTIONS (11)
  - ASTHMA [None]
  - BODY TEMPERATURE INCREASED [None]
  - CONSTIPATION [None]
  - DECREASED APPETITE [None]
  - ENTEROCOLITIS [None]
  - LUNG CONSOLIDATION [None]
  - MALAISE [None]
  - NEUROPATHY PERIPHERAL [None]
  - OROPHARYNGEAL PAIN [None]
  - PNEUMONIA [None]
  - PRODUCTIVE COUGH [None]
